FAERS Safety Report 10920236 (Version 2)
Quarter: 2015Q2

REPORT INFORMATION
  Report Type: Other
  Country: US (occurrence: US)
  Receive Date: 20150317
  Receipt Date: 20150413
  Transmission Date: 20150821
  Serious: No
  Sender: FDA-Public Use
  Company Number: US-LUPIN PHARMACEUTICALS INC.-E2B_00003259

PATIENT
  Sex: Female
  Weight: 58.11 kg

DRUGS (1)
  1. LEVONORGESTREL AND ETHINYL ESTRADIOL TABLETS USP [Suspect]
     Active Substance: ETHINYL ESTRADIOL\LEVONORGESTREL
     Indication: CONTRACEPTION
     Dosage: 0.1MG/0.02MG
     Dates: start: 20150208

REACTIONS (5)
  - Breast pain [Recovered/Resolved]
  - Vaginal discharge [Not Recovered/Not Resolved]
  - Product substitution issue [Not Recovered/Not Resolved]
  - Nausea [Recovered/Resolved]
  - Mood swings [Recovered/Resolved]
